FAERS Safety Report 7807830-4 (Version None)
Quarter: 2011Q4

REPORT INFORMATION
  Report Type: 
  Country: None (occurrence: None)
  Receive Date: 20111011
  Receipt Date: 20111005
  Transmission Date: 20120403
  Serious: Yes (Other)
  Sender: FDA-Public Use
  Company Number: JP-EISAI INC-E2090-01761-SPO-JP

PATIENT
  Sex: Male

DRUGS (7)
  1. ALPRAZOLAM [Concomitant]
  2. AMOBAN [Concomitant]
  3. DEPAKENE [Concomitant]
     Dosage: DOSE INCREASED
     Dates: start: 20090825
  4. ZONISAMIDE [Suspect]
     Indication: EPILEPSY
     Route: 048
     Dates: start: 20091111, end: 20091127
  5. DOGMATYL [Concomitant]
     Dates: start: 20010201
  6. DESYREL [Concomitant]
  7. DEPAKENE [Concomitant]
     Indication: EPILEPSY
     Dosage: UNKNOWN
     Dates: start: 20071116, end: 20090824

REACTIONS (2)
  - DRUG ERUPTION [None]
  - LIVER DISORDER [None]
